FAERS Safety Report 10601999 (Version 3)
Quarter: 2015Q2

REPORT INFORMATION
  Report Type: Spontaneous
  Country: US (occurrence: US)
  Receive Date: 20141124
  Receipt Date: 20150612
  Transmission Date: 20150821
  Serious: Yes (Life-Threatening, Hospitalization, Other)
  Sender: FDA-Public Use
  Company Number: US-BAYER-2014-172347

PATIENT
  Age: 23 Year
  Sex: Female
  Weight: 56.24 kg

DRUGS (4)
  1. PROMETRIUM [Concomitant]
     Active Substance: PROGESTERONE
  2. MIRENA [Suspect]
     Active Substance: LEVONORGESTREL
     Indication: CONTRACEPTION
     Dosage: 20 MCG/24HR, CONT
     Route: 015
     Dates: start: 20120803, end: 20121218
  3. MACROBID [Concomitant]
     Active Substance: NITROFURANTOIN\NITROFURANTOIN MONOHYDRATE
  4. PRENATAL VITAMINS [VIT C,B5,B12,D2,B3,B6,RETINOL PALMIT,B2,B1 MONO [Concomitant]
     Dosage: UNK UNK, PRN

REACTIONS (17)
  - Habitual abortion [None]
  - Infection [None]
  - Depression [None]
  - Genital haemorrhage [None]
  - Abdominal pain [None]
  - Injury [None]
  - Emotional distress [None]
  - Device dislocation [None]
  - Uterine perforation [None]
  - General physical health deterioration [None]
  - Device issue [None]
  - Device malfunction [None]
  - Anxiety [None]
  - Pain [None]
  - Discomfort [None]
  - Anhedonia [None]
  - Urinary tract infection [None]

NARRATIVE: CASE EVENT DATE: 201210
